FAERS Safety Report 4373187-7 (Version None)
Quarter: 2004Q2

REPORT INFORMATION
  Report Type: 
  Country: None (occurrence: None)
  Receive Date: 20040608
  Receipt Date: 20040210
  Transmission Date: 20050107
  Serious: Yes (Other)
  Sender: FDA-Public Use
  Company Number: US-ROCHE-358688

PATIENT
  Age: 23 Year
  Sex: Male
  Weight: 52.2 kg

DRUGS (3)
  1. ACCUTANE [Suspect]
     Indication: ACNE
     Route: 048
     Dates: start: 19990615, end: 19990615
  2. ACCUTANE [Suspect]
     Route: 048
     Dates: start: 19980615, end: 19980615
  3. ACCUTANE [Suspect]
     Route: 048
     Dates: start: 19970615, end: 19970615

REACTIONS (3)
  - CHOLANGITIS SCLEROSING [None]
  - COLITIS ULCERATIVE [None]
  - INFLAMMATORY BOWEL DISEASE [None]
